FAERS Safety Report 7075245-5 (Version None)
Quarter: 2010Q4

REPORT INFORMATION
  Report Type: 
  Country: None (occurrence: None)
  Receive Date: 20101030
  Receipt Date: 20100720
  Transmission Date: 20110411
  Serious: No
  Sender: FDA-Public Use
  Company Number: US-WYE-H16476410

PATIENT
  Sex: Female

DRUGS (2)
  1. ALAVERT D-12 [Suspect]
     Indication: HYPERSENSITIVITY
     Dosage: UNKNOWN
     Route: 065
  2. ALAVERT D-12 [Suspect]
     Indication: SINUS DISORDER

REACTIONS (3)
  - BLOOD PRESSURE INCREASED [None]
  - CONDITION AGGRAVATED [None]
  - DIABETES MELLITUS [None]
